FAERS Safety Report 20382320 (Version 1)
Quarter: 2022Q1

REPORT INFORMATION
  Report Type: Spontaneous
  Country: US (occurrence: US)
  Receive Date: 20220127
  Receipt Date: 20220127
  Transmission Date: 20220424
  Serious: No
  Sender: FDA-Public Use
  Company Number: US-PFIZER INC-202101872079

PATIENT
  Age: 81 Year
  Sex: Female
  Weight: 48.53 kg

DRUGS (1)
  1. HYDROCORTISONE [Suspect]
     Active Substance: HYDROCORTISONE
     Indication: Pruritus
     Dosage: 2.5 MG

REACTIONS (2)
  - Therapeutic product effect decreased [Unknown]
  - Drug resistance [Unknown]
